FAERS Safety Report 24309171 (Version 4)
Quarter: 2024Q4

REPORT INFORMATION
  Report Type: Spontaneous
  Country: US (occurrence: US)
  Receive Date: 20240911
  Receipt Date: 20241106
  Transmission Date: 20250115
  Serious: No
  Sender: CALLIDITAS THERAPEUTICS AB
  Company Number: US-Calliditas-2024CAL01701

PATIENT
  Age: 60 Year
  Sex: Female
  Weight: 72.1 kg

DRUGS (1)
  1. TARPEYO [Suspect]
     Active Substance: BUDESONIDE
     Indication: IgA nephropathy
     Route: 048
     Dates: start: 20240621

REACTIONS (5)
  - Joint swelling [Unknown]
  - Muscle spasms [Unknown]
  - Headache [Unknown]
  - Myalgia [Unknown]
  - Vitamin D decreased [Unknown]
